FAERS Safety Report 8320311-7 (Version None)
Quarter: 2012Q2

REPORT INFORMATION
  Report Type: 
  Country: None (occurrence: None)
  Receive Date: 20120430
  Receipt Date: 20120424
  Transmission Date: 20120825
  Serious: No
  Sender: FDA-Public Use
  Company Number: US-PFIZER INC-2012036998

PATIENT
  Sex: Female

DRUGS (2)
  1. TRAZODONE [Concomitant]
     Indication: SLEEP DISORDER
     Dosage: UNK,DAILY
  2. DEPO-PROVERA [Suspect]
     Indication: CONTRACEPTION
     Dosage: UNK,
     Dates: start: 20110101

REACTIONS (2)
  - METRORRHAGIA [None]
  - POOR QUALITY DRUG ADMINISTERED [None]
